FAERS Safety Report 7119535-6 (Version None)
Quarter: 2010Q4

REPORT INFORMATION
  Report Type: 
  Country: None (occurrence: None)
  Receive Date: 20101123
  Receipt Date: 20101031
  Transmission Date: 20110411
  Serious: Yes (Other)
  Sender: FDA-Public Use
  Company Number: US-AMGEN-USASP2010003004

PATIENT

DRUGS (1)
  1. PROCRIT [Suspect]
     Indication: PRODUCT USED FOR UNKNOWN INDICATION
     Dosage: 4000 UNIT, UNK
     Route: 058
     Dates: start: 20100901, end: 20100901

REACTIONS (8)
  - ABNORMAL LOSS OF WEIGHT [None]
  - ANXIETY [None]
  - BLOOD TESTOSTERONE DECREASED [None]
  - CHILLS [None]
  - DEPRESSION [None]
  - HYPOAESTHESIA [None]
  - PARAESTHESIA [None]
  - VISION BLURRED [None]
